FAERS Safety Report 6913026-0 (Version None)
Quarter: 2010Q3

REPORT INFORMATION
  Report Type: 
  Country: None (occurrence: None)
  Receive Date: 20100806
  Receipt Date: 20090616
  Transmission Date: 20110219
  Serious: No
  Sender: FDA-Public Use
  Company Number: US-PFIZER INC-2009191507

PATIENT
  Sex: Female

DRUGS (6)
  1. GEMFIBROZIL [Suspect]
  2. CLONAZEPAM [Suspect]
  3. METFORMIN HCL [Suspect]
  4. LEVOTHYROXINE SODIUM [Suspect]
  5. WELLBUTRIN [Suspect]
  6. STRATTERA [Suspect]

REACTIONS (4)
  - ANXIETY [None]
  - DIZZINESS [None]
  - DYSGEUSIA [None]
  - FATIGUE [None]
